FAERS Safety Report 7543413-1 (Version None)
Quarter: 2011Q2

REPORT INFORMATION
  Report Type: 
  Country: None (occurrence: None)
  Receive Date: 20110613
  Receipt Date: 20110602
  Transmission Date: 20111010
  Serious: Yes (Death, Hospitalization)
  Sender: FDA-Public Use
  Company Number: CA-BAXTER-2011BH016051

PATIENT
  Age: 69 Year
  Sex: Male

DRUGS (2)
  1. DURAGESIC-100 [Concomitant]
     Indication: PRODUCT USED FOR UNKNOWN INDICATION
  2. DIANEAL [Suspect]
     Indication: PERITONEAL DIALYSIS
     Route: 033
     Dates: end: 20101021

REACTIONS (7)
  - PAIN [None]
  - MALNUTRITION [None]
  - DEATH [None]
  - MUSCLE SPASMS [None]
  - SOMNOLENCE [None]
  - ASTHENIA [None]
  - COMA [None]
